FAERS Safety Report 19918993 (Version 1)
Quarter: 2021Q4

REPORT INFORMATION
  Report Type: Spontaneous
  Country: FI (occurrence: FI)
  Receive Date: 20211005
  Receipt Date: 20211005
  Transmission Date: 20220303
  Serious: Yes (Hospitalization, Other)
  Sender: FDA-Public Use
  Company Number: FI-UCBSA-2021045967

PATIENT
  Sex: Male

DRUGS (1)
  1. KEPPRA [Suspect]
     Active Substance: LEVETIRACETAM
     Indication: Epilepsy
     Dosage: 500 MILLIGRAM, 2X/DAY (BID)
     Dates: start: 20210601

REACTIONS (10)
  - Fall [Unknown]
  - Brain neoplasm [Unknown]
  - Skin exfoliation [Unknown]
  - Lip swelling [Unknown]
  - Agitation [Unknown]
  - Nervousness [Unknown]
  - Dyspepsia [Unknown]
  - Nausea [Unknown]
  - Decreased appetite [Unknown]
  - Weight decreased [Unknown]

NARRATIVE: CASE EVENT DATE: 20210601
